FAERS Safety Report 7691803-9 (Version None)
Quarter: 2011Q3

REPORT INFORMATION
  Report Type: 
  Country: None (occurrence: None)
  Receive Date: 20110818
  Receipt Date: 20110816
  Transmission Date: 20111222
  Serious: Yes (Death, Other)
  Sender: FDA-Public Use
  Company Number: VE-PFIZER INC-2011177119

PATIENT
  Age: 82 Year
  Sex: Male

DRUGS (5)
  1. PLAVIX [Concomitant]
     Dosage: 75 MG, 1X/DAY
     Route: 048
     Dates: start: 20010101
  2. CORAZEM [Concomitant]
     Dosage: UNK
     Dates: start: 20010101
  3. LIPITOR [Suspect]
     Indication: HYPERCHOLESTEROLAEMIA
     Dosage: 40 MG, 1X/DAY
     Route: 048
  4. AMIODARONE HCL [Concomitant]
     Dosage: 200 MG, 1X/DAY
     Route: 048
     Dates: start: 20010101
  5. COUMADIN [Concomitant]
     Indication: COAGULOPATHY
     Dosage: UNK

REACTIONS (2)
  - GALLBLADDER OPERATION [None]
  - SEPSIS [None]
